FAERS Safety Report 21260927 (Version 1)
Quarter: 2022Q3

REPORT INFORMATION
  Report Type: Spontaneous
  Country: JP (occurrence: JP)
  Receive Date: 20220826
  Receipt Date: 20220826
  Transmission Date: 20221027
  Serious: Yes (Other)
  Sender: FDA-Public Use
  Company Number: JP-Eisai-202206632_LEN-HCC_P_1

PATIENT
  Age: 59 Year
  Sex: Male

DRUGS (4)
  1. LENVIMA [Suspect]
     Active Substance: LENVATINIB
     Indication: Hepatocellular carcinoma
     Route: 048
  2. LENVIMA [Suspect]
     Active Substance: LENVATINIB
     Dosage: DOSE ADJUSTMENTS
     Route: 048
  3. LENVIMA [Suspect]
     Active Substance: LENVATINIB
     Dosage: DOSE REDUCED
     Route: 048
     Dates: start: 2022, end: 2022
  4. LENVIMA [Suspect]
     Active Substance: LENVATINIB
     Route: 048
     Dates: start: 202208

REACTIONS (1)
  - Liver transplant rejection [Recovering/Resolving]

NARRATIVE: CASE EVENT DATE: 20220701
